FAERS Safety Report 8595195-2 (Version None)
Quarter: 2012Q3

REPORT INFORMATION
  Report Type: 
  Country: None (occurrence: None)
  Receive Date: 20120807
  Receipt Date: 20120807
  Transmission Date: 20120928
  Serious: Yes (Hospitalization)
  Sender: FDA-Public Use
  Company Number: None

PATIENT
  Sex: Female
  Weight: 69.3 kg

DRUGS (2)
  1. SANDOSTATIN [Suspect]
     Dosage: 20 MG
     Dates: end: 20120720
  2. EVEROLIMUS (AFIITOR, RAD-001) [Suspect]
     Dosage: 150 MG
     Dates: end: 20120712

REACTIONS (4)
  - PNEUMOTHORAX [None]
  - PNEUMONITIS [None]
  - CARDIO-RESPIRATORY ARREST [None]
  - POST PROCEDURAL COMPLICATION [None]
